FAERS Safety Report 20434233 (Version 9)
Quarter: 2023Q2

REPORT INFORMATION
  Report Type: Report from Study
  Country: US (occurrence: US)
  Receive Date: 20220206
  Receipt Date: 20230630
  Transmission Date: 20230722
  Serious: Yes (Other)
  Sender: FDA-Public Use
  Company Number: US-NOVARTISTESTPH-NVSC2022US023879

PATIENT
  Age: 51 Year
  Sex: Female
  Weight: 64.4 kg

DRUGS (8)
  1. KESIMPTA [Suspect]
     Active Substance: OFATUMUMAB
     Indication: Multiple sclerosis
     Dosage: 20 MG, QMO
     Route: 058
     Dates: start: 20220114
  2. NORVASC [Concomitant]
     Active Substance: AMLODIPINE BESYLATE
     Indication: Product used for unknown indication
     Dosage: 10 MG, QD (CONC:10 MG)
     Route: 048
     Dates: start: 20220317
  3. NORVASC [Concomitant]
     Active Substance: AMLODIPINE BESYLATE
     Dosage: UNK UNK, QN (5-10MG BY MOUTH AT BEDTIME) (CONC:5MG)
     Route: 048
  4. VITAMIN D3 [Concomitant]
     Active Substance: CHOLECALCIFEROL
     Indication: Product used for unknown indication
     Dosage: 2000 UNITS, QD
     Route: 048
  5. NEURONTIN [Concomitant]
     Active Substance: GABAPENTIN
     Indication: Product used for unknown indication
     Dosage: 1 DOSAGE FORM, BID
     Route: 048
     Dates: start: 20220413, end: 20220511
  6. PLAQUENIL [Concomitant]
     Active Substance: HYDROXYCHLOROQUINE SULFATE
     Indication: Product used for unknown indication
     Dosage: 200 MG, BID
     Route: 048
     Dates: start: 20220412
  7. VYVANSE [Concomitant]
     Active Substance: LISDEXAMFETAMINE DIMESYLATE
     Indication: Attention deficit hyperactivity disorder
     Dosage: 50 MG, QD
     Route: 048
     Dates: start: 20220315
  8. NITRO BID [Concomitant]
     Indication: Product used for unknown indication
     Dosage: 2.5 MG, BID
     Route: 048

REACTIONS (39)
  - Depressed level of consciousness [Recovering/Resolving]
  - Scleroderma [Not Recovered/Not Resolved]
  - Dry eye [Unknown]
  - Multiple sclerosis [Not Recovered/Not Resolved]
  - Peripheral swelling [Not Recovered/Not Resolved]
  - Deafness [Unknown]
  - COVID-19 [Not Recovered/Not Resolved]
  - Gastrointestinal disorder [Unknown]
  - Weight decreased [Recovering/Resolving]
  - Herpes zoster [Not Recovered/Not Resolved]
  - Pain [Not Recovered/Not Resolved]
  - Chills [Not Recovered/Not Resolved]
  - Osteoarthritis [Not Recovered/Not Resolved]
  - Diplopia [Unknown]
  - Concomitant disease aggravated [Unknown]
  - Gait disturbance [Unknown]
  - Vision blurred [Unknown]
  - Eye pain [Unknown]
  - Ear pain [Unknown]
  - Vertigo [Unknown]
  - Dysphagia [Unknown]
  - Constipation [Unknown]
  - Abdominal pain upper [Unknown]
  - Diarrhoea [Unknown]
  - Urinary incontinence [Unknown]
  - Arthralgia [Unknown]
  - Joint stiffness [Unknown]
  - Sneezing [Unknown]
  - Headache [Unknown]
  - Depression [Unknown]
  - Contusion [Unknown]
  - Joint swelling [Unknown]
  - Ocular discomfort [Unknown]
  - Tinnitus [Unknown]
  - Cough [Unknown]
  - Tobacco abuse [Unknown]
  - Paraesthesia [Unknown]
  - Somnolence [Unknown]
  - Neuralgia [Unknown]

NARRATIVE: CASE EVENT DATE: 20220114
